FAERS Safety Report 5511975-1 (Version None)
Quarter: 2007Q4

REPORT INFORMATION
  Report Type: 
  Country: None (occurrence: None)
  Receive Date: 20071109
  Receipt Date: 20071029
  Transmission Date: 20080405
  Serious: Yes (Death)
  Sender: FDA-Public Use
  Company Number: GB-PFIZER INC-2007092464

PATIENT
  Age: 75 Year
  Sex: Male
  Weight: 70 kg

DRUGS (7)
  1. SULFASALAZINE [Suspect]
     Indication: PSORIATIC ARTHROPATHY
     Route: 048
     Dates: start: 19980501, end: 20070907
  2. AMITRIPTYLINE HCL [Concomitant]
     Indication: DEPRESSION
     Route: 048
     Dates: start: 19980101, end: 20070907
  3. CALCIPOTRIENE [Concomitant]
     Route: 061
  4. CHLORPROMAZINE [Concomitant]
     Dosage: DAILY DOSE:100MG
     Route: 048
     Dates: start: 19980101, end: 20070907
  5. CIMETIDINE [Concomitant]
     Indication: DYSPEPSIA
     Route: 048
     Dates: start: 19980101, end: 20070907
  6. IBUPROFEN [Concomitant]
     Route: 048
     Dates: start: 20050101, end: 20070907
  7. PROCYCLIDINE HYDROCHLORIDE 5MG TAB [Concomitant]
     Route: 048
     Dates: start: 19980101, end: 20070907

REACTIONS (1)
  - DEATH [None]
